FAERS Safety Report 4987982-4 (Version None)
Quarter: 2006Q2

REPORT INFORMATION
  Report Type: 
  Country: None (occurrence: None)
  Receive Date: 20060424
  Receipt Date: 20060418
  Transmission Date: 20061013
  Serious: Yes (Hospitalization)
  Sender: FDA-Public Use
  Company Number: SEWYE563719APR06

PATIENT
  Age: 35 Year
  Sex: Female

DRUGS (2)
  1. FOLLINET            (LEVONORGESTREL/ETHINYL ESTRADIOL) [Suspect]
     Indication: CONTRACEPTION
  2. IBUPROFEN [Concomitant]

REACTIONS (2)
  - CORNEAL DEPOSITS [None]
  - VISUAL DISTURBANCE [None]
